FAERS Safety Report 12120422 (Version 1)
Quarter: 2016Q1

REPORT INFORMATION
  Report Type: Report from Study
  Country: BR (occurrence: BR)
  Receive Date: 20160226
  Receipt Date: 20160226
  Transmission Date: 20160526
  Serious: Yes (Death)
  Sender: FDA-Public Use
  Company Number: BR-ABBVIE-15K-020-1394112-00

PATIENT
  Age: 74 Year
  Sex: Female
  Weight: 45 kg

DRUGS (7)
  1. HUMIRA [Suspect]
     Active Substance: ADALIMUMAB
     Indication: RHEUMATOID ARTHRITIS
     Route: 058
     Dates: start: 20140321
  2. REUQUINOL [Concomitant]
     Active Substance: HYDROXYCHLOROQUINE SULFATE
     Indication: PRODUCT USED FOR UNKNOWN INDICATION
     Route: 048
  3. DIGOXIN. [Concomitant]
     Active Substance: DIGOXIN
     Indication: PRODUCT USED FOR UNKNOWN INDICATION
     Dosage: 1 TABLET PER DAY DURING 5 DAYS AND 2 DAYS WITHOUT TAKING THIS MEDICATION
     Route: 048
     Dates: start: 20150325
  4. HUMIRA [Suspect]
     Active Substance: ADALIMUMAB
     Route: 058
  5. PREDNISONE. [Concomitant]
     Active Substance: PREDNISONE
     Indication: PRODUCT USED FOR UNKNOWN INDICATION
     Route: 048
  6. OMEPRAZOLE. [Concomitant]
     Active Substance: OMEPRAZOLE
     Indication: PRODUCT USED FOR UNKNOWN INDICATION
     Route: 048
  7. CAPTOPRIL. [Concomitant]
     Active Substance: CAPTOPRIL
     Indication: BLOOD PRESSURE ABNORMAL
     Route: 048
     Dates: start: 2007

REACTIONS (15)
  - Joint swelling [Recovered/Resolved]
  - Bone swelling [Not Recovered/Not Resolved]
  - Localised oedema [Not Recovered/Not Resolved]
  - Pain in extremity [Recovering/Resolving]
  - Swelling [Unknown]
  - Pain [Unknown]
  - Peripheral swelling [Recovered/Resolved]
  - Rheumatic fever [Recovered/Resolved]
  - Bone disorder [Unknown]
  - Organ failure [Fatal]
  - Feeling abnormal [Recovered/Resolved]
  - Rheumatic fever [Recovered/Resolved]
  - Fluid retention [Unknown]
  - Tendon rupture [Recovering/Resolving]
  - Joint range of motion decreased [Unknown]

NARRATIVE: CASE EVENT DATE: 20141213
